FAERS Safety Report 24278052 (Version 1)
Quarter: 2024Q3

REPORT INFORMATION
  Report Type: Spontaneous
  Country: US (occurrence: US)
  Receive Date: 20240903
  Receipt Date: 20240903
  Transmission Date: 20241017
  Serious: No
  Sender: MERCK
  Company Number: US-009507513-2408USA006936

PATIENT
  Age: 67 Year
  Sex: Male

DRUGS (1)
  1. KEYTRUDA [Suspect]
     Active Substance: PEMBROLIZUMAB
     Indication: Renal cell carcinoma
     Dosage: 400 MILLIGRAM, EVERY 42 DAYS
     Route: 042
     Dates: end: 2024

REACTIONS (1)
  - Blood pressure inadequately controlled [Unknown]

NARRATIVE: CASE EVENT DATE: 20240802
